FAERS Safety Report 4263708-7 (Version None)
Quarter: 2004Q1

REPORT INFORMATION
  Report Type: 
  Country: None (occurrence: None)
  Receive Date: 20040102
  Receipt Date: 20031224
  Transmission Date: 20041129
  Serious: Yes (Hospitalization, Other)
  Sender: FDA-Public Use
  Company Number: HQWYE457008DEC03

PATIENT
  Age: 42 Year
  Sex: Female

DRUGS (1)
  1. ETODOLAC [Suspect]
     Dosage: 100MG DAILY; ORAL
     Route: 048
     Dates: start: 20030929, end: 20030901

REACTIONS (3)
  - ABDOMINAL PAIN [None]
  - CONJUNCTIVAL HYPERAEMIA [None]
  - DRUG ERUPTION [None]
